FAERS Safety Report 6245532-9 (Version None)
Quarter: 2009Q2

REPORT INFORMATION
  Report Type: 
  Country: None (occurrence: None)
  Receive Date: 20090625
  Receipt Date: 20090619
  Transmission Date: 20091009
  Serious: No
  Sender: FDA-Public Use
  Company Number: US-B.I. PHARMACEUTICALS,INC./RIDGEFIELD-2008-BP-03192BP

PATIENT
  Sex: Male

DRUGS (4)
  1. SPIRIVA [Suspect]
     Indication: CHRONIC OBSTRUCTIVE PULMONARY DISEASE
     Dates: start: 20080201, end: 20080601
  2. DIOVAN [Concomitant]
  3. FLONASE [Concomitant]
  4. ALBUTEROL [Concomitant]

REACTIONS (2)
  - PRURITUS [None]
  - URTICARIA [None]
